FAERS Safety Report 5197459-1 (Version None)
Quarter: 2006Q4

REPORT INFORMATION
  Report Type: 
  Country: None (occurrence: None)
  Receive Date: 20060927
  Receipt Date: 20060612
  Transmission Date: 20070319
  Serious: No
  Sender: FDA-Public Use
  Company Number: US-CVT-061296

PATIENT
  Age: 38 Year
  Sex: Male
  Weight: 73 kg

DRUGS (6)
  1. RANEXA [Suspect]
     Indication: ANGINA PECTORIS
     Dosage: 1000 MG, BID, ORAL
     Route: 048
     Dates: start: 20060101, end: 20060609
  2. CRESTOR [Suspect]
     Indication: HYPERLIPIDAEMIA
     Dosage: 40 MG, QD, ORAL
     Route: 048
  3. ZETIA [Concomitant]
  4. NORVASC  /00972401 (AMLODIPINE) [Concomitant]
  5. TOPROL-XL [Concomitant]
  6. PLAVIX [Concomitant]

REACTIONS (2)
  - DRUG INTERACTION [None]
  - LOW DENSITY LIPOPROTEIN INCREASED [None]
